FAERS Safety Report 7094685-1 (Version None)
Quarter: 2010Q4

REPORT INFORMATION
  Report Type: 
  Country: None (occurrence: None)
  Receive Date: 20101110
  Receipt Date: 20081013
  Transmission Date: 20110411
  Serious: No
  Sender: FDA-Public Use
  Company Number: US-KINGPHARMUSA00001-K200801195

PATIENT
  Age: 73 Year
  Sex: Female

DRUGS (4)
  1. TILADE [Suspect]
     Indication: ASTHMA
     Dosage: 1 PUFF, BID
  2. TILADE [Suspect]
     Dosage: 1 PUFF, QHS
  3. ASPIRIN [Concomitant]
     Indication: COAGULOPATHY
     Dosage: 81 MG, QD
     Route: 048
  4. ^CHLORAZEPAM^ [Concomitant]
     Indication: NERVOUSNESS
     Route: 048

REACTIONS (2)
  - BACK PAIN [None]
  - FEELING ABNORMAL [None]
